FAERS Safety Report 7449811-9 (Version None)
Quarter: 2011Q2

REPORT INFORMATION
  Report Type: 
  Country: None (occurrence: None)
  Receive Date: 20110502
  Receipt Date: 20110420
  Transmission Date: 20111010
  Serious: Yes (Other)
  Sender: FDA-Public Use
  Company Number: JP-ELI_LILLY_AND_COMPANY-JP201101006170

PATIENT
  Sex: Female
  Weight: 38 kg

DRUGS (10)
  1. DULOXETINE HYDROCHLORIDE [Suspect]
     Indication: MAJOR DEPRESSION
     Dosage: 20 MG, QD
     Route: 048
     Dates: start: 20100826
  2. DULOXETINE HYDROCHLORIDE [Suspect]
     Dosage: 60 MG, QD
     Dates: start: 20100901
  3. FLUNITRAZEPAM [Concomitant]
     Indication: MAJOR DEPRESSION
     Dosage: 1 MG, DAILY (1/D)
     Route: 048
     Dates: start: 20090701, end: 20101001
  4. OLANZAPINE [Concomitant]
     Indication: MAJOR DEPRESSION
     Dosage: 2.5 MG, DAILY (1/D)
     Route: 048
     Dates: start: 20090701, end: 20101001
  5. MIDODRINE HYDROCHLORIDE [Concomitant]
     Dosage: 6 MG, DAILY (1/D)
     Route: 048
  6. DULOXETINE HYDROCHLORIDE [Suspect]
     Dosage: 20 MG, QD
     Dates: start: 20101001, end: 20101020
  7. ZOPIDEM [Concomitant]
     Indication: MAJOR DEPRESSION
     Dosage: 10 MG, DAILY (1/D)
     Route: 048
     Dates: start: 20090701, end: 20101001
  8. DULOXETINE HYDROCHLORIDE [Suspect]
     Dosage: 40 MG, QD
     Dates: start: 20100925
  9. LEVOTHYROXINE SODIUM [Concomitant]
     Dosage: 50 UG, DAILY (1/D)
     Route: 048
  10. AMEZINIUM METILSULFATE [Concomitant]
     Dosage: 20 MG, DAILY (1/D)
     Route: 048

REACTIONS (3)
  - FALL [None]
  - CONVULSION [None]
  - LOSS OF CONSCIOUSNESS [None]
